FAERS Safety Report 26111365 (Version 1)
Quarter: 2025Q4

REPORT INFORMATION
  Report Type: Spontaneous
  Country: EU (occurrence: EU)
  Receive Date: 20251202
  Receipt Date: 20251202
  Transmission Date: 20260118
  Serious: Yes (Hospitalization)
  Sender: ROCHE
  Company Number: None

PATIENT
  Sex: Male
  Weight: 3.51 kg

DRUGS (5)
  1. XOLAIR [Suspect]
     Active Substance: OMALIZUMAB
     Indication: Asthma
     Dosage: 450 MG, QMO
     Route: 064
     Dates: start: 20240113, end: 20241008
  2. INNOVAIR [Suspect]
     Active Substance: BECLOMETHASONE DIPROPIONATE\FORMOTEROL
     Indication: Asthma
     Dosage: 400 UG, Q12H (NEXTHALER 200 MICROGRAMMES/6 MICROGRAMMES PAR INHALATION, POUDRE POUR INHALATION)
     Route: 064
     Dates: start: 20240113, end: 20241008
  3. BILASTINE [Suspect]
     Active Substance: BILASTINE
     Indication: Asthma
     Dosage: 1 DOSAGE FORM
     Route: 064
     Dates: start: 20240113, end: 20241008
  4. SPIRIVA RESPIMAT [Suspect]
     Active Substance: TIOTROPIUM BROMIDE
     Indication: Asthma
     Dosage: 2 DOSAGE FORM, QD (2,5 MICROGRAMMES/DOSE, SOLUTION POUR INHALATION)
     Route: 064
     Dates: start: 20240113, end: 20241008
  5. NASONEX [Suspect]
     Active Substance: MOMETASONE FUROATE
     Indication: Asthma
     Dosage: 1 DOSAGE FORM, QD (50 MICROGRAMMES/DOSE)
     Route: 064
     Dates: start: 20240113, end: 20241008

REACTIONS (2)
  - Foetal heart rate disorder [Recovered/Resolved]
  - Neonatal respiratory distress [Recovered/Resolved]

NARRATIVE: CASE EVENT DATE: 20241008
